FAERS Safety Report 20556836 (Version 1)
Quarter: 2022Q1

REPORT INFORMATION
  Report Type: Spontaneous
  Country: IN (occurrence: IN)
  Receive Date: 20220307
  Receipt Date: 20220307
  Transmission Date: 20220423
  Serious: Yes (Other)
  Sender: FDA-Public Use
  Company Number: IN-MLMSERVICE-20220223-3393090-1

PATIENT
  Age: 67 Year
  Sex: Male

DRUGS (5)
  1. CARBIDOPA\LEVODOPA [Suspect]
     Active Substance: CARBIDOPA\LEVODOPA
     Indication: Parkinsonism
     Dosage: LEVODOPA (100MG), CARBIDOPA (25MG)
  2. ESCITALOPRAM [Suspect]
     Active Substance: ESCITALOPRAM OXALATE
     Indication: Major depression
  3. LEVOTHYROXINE SODIUM [Concomitant]
     Active Substance: LEVOTHYROXINE SODIUM
     Dosage: 25 UG
  4. ENALAPRIL [Concomitant]
     Active Substance: ENALAPRIL
  5. PRIMIDONE [Concomitant]
     Active Substance: PRIMIDONE

REACTIONS (5)
  - Apraxia [Recovered/Resolved]
  - Vitritis [Recovered/Resolved]
  - Lens dislocation [Recovered/Resolved]
  - Angle closure glaucoma [Recovered/Resolved]
  - Blepharospasm [Recovered/Resolved]
